FAERS Safety Report 7412800-4 (Version None)
Quarter: 2011Q2

REPORT INFORMATION
  Report Type: 
  Country: None (occurrence: None)
  Receive Date: 20110413
  Receipt Date: 20110406
  Transmission Date: 20111010
  Serious: Yes (Other)
  Sender: FDA-Public Use
  Company Number: A0922699A

PATIENT
  Sex: Female
  Weight: 47.7 kg

DRUGS (9)
  1. TYKERB [Suspect]
     Dosage: 1250MG PER DAY
     Route: 048
  2. MULTI-VITAMIN [Concomitant]
     Route: 065
  3. ZOFRAN [Concomitant]
     Dosage: 4MG UNKNOWN
     Route: 065
  4. IMODIUM [Concomitant]
     Dosage: 2MG UNKNOWN
     Route: 065
  5. ALEVE [Concomitant]
     Dosage: 220MG UNKNOWN
     Route: 065
  6. XELODA [Suspect]
     Dosage: 150MG UNKNOWN
     Route: 065
  7. LIDOCAINE [Concomitant]
     Dosage: 4PCT UNKNOWN
     Route: 065
  8. ZOMETA [Concomitant]
     Dosage: 4MG UNKNOWN
     Route: 065
  9. VITAMIN B [Concomitant]
     Route: 065

REACTIONS (6)
  - RASH [None]
  - PALMAR-PLANTAR ERYTHRODYSAESTHESIA SYNDROME [None]
  - PRURITUS [None]
  - PAIN OF SKIN [None]
  - SKIN BURNING SENSATION [None]
  - ERYTHEMA [None]
